FAERS Safety Report 10156082 (Version 4)
Quarter: 2014Q2

REPORT INFORMATION
  Report Type: Report from Study
  Country: US (occurrence: US)
  Receive Date: 20140506
  Receipt Date: 20140609
  Transmission Date: 20141212
  Serious: Yes (Death, Other)
  Sender: FDA-Public Use
  Company Number: PHHO2014US002165

PATIENT
  Sex: Male
  Weight: 97.2 kg

DRUGS (7)
  1. TASIGNA [Suspect]
     Indication: ACUTE MYELOID LEUKAEMIA
     Dosage: 300 MG, BID
     Route: 048
     Dates: start: 20140124, end: 20140127
  2. DAUNORUBICIN [Suspect]
     Indication: ACUTE MYELOID LEUKAEMIA
     Dosage: 60 MG/M2, UNK
     Route: 042
     Dates: start: 20140124
  3. CYTARABINE [Suspect]
     Indication: ACUTE MYELOID LEUKAEMIA
     Dosage: 25 MG/M2, UNK
     Route: 042
     Dates: start: 20140124
  4. CYTARABINE [Suspect]
     Dosage: 100 MG/M2, UNK
     Route: 042
  5. PARACETAMOL [Concomitant]
  6. ACE INHIBITORS [Concomitant]
  7. METRONIDAZOLE [Concomitant]

REACTIONS (4)
  - Respiratory failure [Fatal]
  - Hepatic failure [Unknown]
  - Blood bilirubin increased [Recovering/Resolving]
  - Sepsis [Unknown]
